FAERS Safety Report 4510438-X (Version None)
Quarter: 2004Q4

REPORT INFORMATION
  Report Type: 
  Country: None (occurrence: None)
  Receive Date: 20041124
  Receipt Date: 20041119
  Transmission Date: 20050328
  Serious: Yes (Hospitalization)
  Sender: FDA-Public Use
  Company Number: US-GLAXOSMITHKLINE-A0534698A

PATIENT
  Age: 15 Year
  Sex: Male

DRUGS (3)
  1. ADVAIR [Suspect]
     Indication: DRUG USE FOR UNKNOWN INDICATION
     Route: 055
     Dates: start: 20040101
  2. SINGULAIR [Concomitant]
     Route: 065
  3. ALBUTEROL [Concomitant]

REACTIONS (4)
  - DISORIENTATION [None]
  - ILL-DEFINED DISORDER [None]
  - SLUGGISHNESS [None]
  - TREMOR [None]
